FAERS Safety Report 20567885 (Version 1)
Quarter: 2022Q1

REPORT INFORMATION
  Report Type: Spontaneous
  Country: FR (occurrence: FR)
  Receive Date: 20220308
  Receipt Date: 20220308
  Transmission Date: 20220423
  Serious: Yes (Disabling)
  Sender: FDA-Public Use
  Company Number: None

PATIENT
  Age: 45 Year
  Sex: Male
  Weight: 63 kg

DRUGS (2)
  1. METOPROLOL TARTRATE [Suspect]
     Active Substance: METOPROLOL TARTRATE
     Indication: Secondary hypertension
     Dosage: 100 MILLIGRAM, QD
     Route: 048
     Dates: start: 20160501, end: 20200901
  2. ENVARSUS XR [Concomitant]
     Active Substance: TACROLIMUS
     Indication: Prophylaxis against transplant rejection
     Dosage: UNK

REACTIONS (2)
  - Tinnitus [Not Recovered/Not Resolved]
  - Phonophobia [Recovered/Resolved]

NARRATIVE: CASE EVENT DATE: 20200101
